FAERS Safety Report 8502686-9 (Version None)
Quarter: 2012Q3

REPORT INFORMATION
  Report Type: 
  Country: None (occurrence: None)
  Receive Date: 20120702
  Receipt Date: 20120614
  Transmission Date: 20120928
  Serious: Yes (Life-Threatening, Hospitalization, Other)
  Sender: FDA-Public Use
  Company Number: 2012P1044606

PATIENT
  Age: 78 Year
  Sex: Female

DRUGS (4)
  1. DEXTROSE [Concomitant]
  2. PACLITAXEL [Concomitant]
  3. RANITIDINE HCL [Suspect]
     Indication: PREMEDICATION
     Dosage: 50 MG;IV
     Route: 042
     Dates: start: 20110201, end: 20110609
  4. SOLU-MEDROL [Concomitant]

REACTIONS (1)
  - ANAPHYLACTIC SHOCK [None]
